FAERS Safety Report 7674720-X (Version None)
Quarter: 2011Q3

REPORT INFORMATION
  Report Type: 
  Country: None (occurrence: None)
  Receive Date: 20110810
  Receipt Date: 20101216
  Transmission Date: 20111222
  Serious: Yes (Hospitalization)
  Sender: FDA-Public Use
  Company Number: US-GLAXOSMITHKLINE-A0903570A

PATIENT
  Age: 52 Year
  Sex: Male

DRUGS (1)
  1. AVANDIA [Suspect]
     Indication: DIABETES MELLITUS
     Dosage: 4MG PER DAY
     Route: 048
     Dates: start: 20070502, end: 20090401

REACTIONS (6)
  - CATHETERISATION CARDIAC [None]
  - ATRIAL FIBRILLATION [None]
  - CHEST PAIN [None]
  - SURGERY [None]
  - SUPRAVENTRICULAR TACHYCARDIA [None]
  - CARDIAC ENZYMES INCREASED [None]
